FAERS Safety Report 6314659-5 (Version None)
Quarter: 2009Q3

REPORT INFORMATION
  Report Type: 
  Country: None (occurrence: None)
  Receive Date: 20090819
  Receipt Date: 20090814
  Transmission Date: 20100115
  Serious: Yes (Other)
  Sender: FDA-Public Use
  Company Number: US-RB-017103-09

PATIENT
  Age: 52 Year
  Sex: Female

DRUGS (5)
  1. SUBOXONE [Suspect]
     Indication: DRUG DEPENDENCE
     Dosage: DOSING INFORMATION UNKNOWN
     Route: 065
  2. SUBOXONE [Suspect]
     Route: 060
     Dates: start: 20070501
  3. LEXAPRO [Concomitant]
     Indication: DEPRESSION
     Route: 065
     Dates: end: 20090501
  4. LEXAPRO [Concomitant]
     Indication: ANXIETY
     Route: 065
     Dates: end: 20090501
  5. LEXAPRO [Concomitant]
     Indication: PANIC DISORDER
     Route: 065
     Dates: end: 20090501

REACTIONS (8)
  - ASTHENIA [None]
  - CHILLS [None]
  - COLD SWEAT [None]
  - FATIGUE [None]
  - MANIA [None]
  - SUICIDAL BEHAVIOUR [None]
  - VIRAL LOAD INCREASED [None]
  - WITHDRAWAL SYNDROME [None]
